FAERS Safety Report 14548024 (Version 1)
Quarter: 2018Q1

REPORT INFORMATION
  Report Type: Spontaneous
  Country: GB (occurrence: GB)
  Receive Date: 20180219
  Receipt Date: 20180219
  Transmission Date: 20180509
  Serious: Yes (Congenital Anomaly)
  Sender: FDA-Public Use
  Company Number: GB-NOVOPROD-586664

PATIENT
  Sex: Female
  Weight: 3.69 kg

DRUGS (8)
  1. ISOPHANE INSULIN [Suspect]
     Active Substance: INSULIN NOS
     Indication: TYPE 1 DIABETES MELLITUS
     Dosage: 15 U, QD AT BEDTIME
     Route: 064
  2. ISOPHANE INSULIN [Suspect]
     Active Substance: INSULIN NOS
     Dosage: 6 U, BID
     Route: 064
  3. ISOPHANE INSULIN [Suspect]
     Active Substance: INSULIN NOS
     Dosage: DOSE DECREASED
     Route: 064
  4. ACTRAPID [Suspect]
     Active Substance: INSULIN HUMAN
     Dosage: DOSE INCREASED
     Route: 064
  5. ACTRAPID [Suspect]
     Active Substance: INSULIN HUMAN
     Dosage: DOSE DECREASED
     Route: 064
  6. ACTRAPID [Suspect]
     Active Substance: INSULIN HUMAN
     Indication: TYPE 1 DIABETES MELLITUS
     Dosage: 10 U, TID
     Route: 064
  7. ACTRAPID [Suspect]
     Active Substance: INSULIN HUMAN
     Dosage: 50 U, QD (16, 16, 18 UNITS)
     Route: 064
  8. ISOPHANE INSULIN [Suspect]
     Active Substance: INSULIN NOS
     Dosage: 10 U, QD
     Route: 064

REACTIONS (2)
  - Exomphalos [Recovered/Resolved]
  - Foetal exposure during pregnancy [Recovered/Resolved]
